FAERS Safety Report 5534257-0 (Version None)
Quarter: 2007Q4

REPORT INFORMATION
  Report Type: 
  Country: None (occurrence: None)
  Receive Date: 20071203
  Receipt Date: 20071203
  Transmission Date: 20080405
  Serious: Yes (Other)
  Sender: FDA-Public Use
  Company Number: None

PATIENT
  Sex: Female
  Weight: 73.9363 kg

DRUGS (1)
  1. SERTRALINE HCL [Suspect]
     Indication: DEPRESSION
     Dosage: 1 AND 1/2 PO QD
     Route: 048

REACTIONS (4)
  - GLOSSODYNIA [None]
  - ORAL DISCOMFORT [None]
  - ORAL INTAKE REDUCED [None]
  - THERMAL BURN [None]
